FAERS Safety Report 7531824-X (Version None)
Quarter: 2011Q2

REPORT INFORMATION
  Report Type: 
  Country: None (occurrence: None)
  Receive Date: 20110601
  Receipt Date: 20110518
  Transmission Date: 20111010
  Serious: No
  Sender: FDA-Public Use
  Company Number: TPA2011A00775

PATIENT
  Age: 61 Year
  Sex: Female

DRUGS (2)
  1. PRITOR PLUS (HYDROCHLOROTHIAZIDE, TELMISARTAN) [Concomitant]
  2. ADENURIC (FEBUXOSTAT) [Suspect]
     Indication: HYPERURICAEMIA
     Dosage: 80 MG (80 MG, 1 IN 1 D) ORAL
     Route: 048
     Dates: start: 20100831, end: 20110114

REACTIONS (4)
  - DYSPNOEA [None]
  - COUGH [None]
  - PYELONEPHRITIS ACUTE [None]
  - FATIGUE [None]
